FAERS Safety Report 14129159 (Version 1)
Quarter: 2017Q4

REPORT INFORMATION
  Report Type: Spontaneous
  Country: US (occurrence: US)
  Receive Date: 20171026
  Receipt Date: 20171026
  Transmission Date: 20180321
  Serious: No
  Sender: FDA-Public Use
  Company Number: US-DSJP-DSU-2017-100897

PATIENT
  Sex: Female
  Weight: 70.3 kg

DRUGS (1)
  1. WELCHOL [Suspect]
     Active Substance: COLESEVELAM HYDROCHLORIDE
     Indication: HYPERLIPIDAEMIA
     Dosage: 3.75 G, QD
     Route: 048
     Dates: start: 201608

REACTIONS (4)
  - Myalgia [Unknown]
  - Arthralgia [Unknown]
  - Bone pain [Unknown]
  - Muscle spasms [Unknown]
